FAERS Safety Report 7256318-0 (Version None)
Quarter: 2011Q1

REPORT INFORMATION
  Report Type: 
  Country: None (occurrence: None)
  Receive Date: 20110129
  Receipt Date: 20100514
  Transmission Date: 20110831
  Serious: No
  Sender: FDA-Public Use
  Company Number: US-ABBOTT-10P-163-0639623-00

PATIENT
  Sex: Female

DRUGS (8)
  1. VITAMIN D [Concomitant]
     Indication: VITAMIN SUPPLEMENTATION
     Dosage: DAILY
  2. DIOVAN [Concomitant]
     Indication: HYPERTENSION
  3. HUMIRA [Suspect]
     Indication: RHEUMATOID ARTHRITIS
     Route: 058
     Dates: start: 20100419
  4. VITAMIN B-12 [Concomitant]
     Indication: VITAMIN SUPPLEMENTATION
     Dosage: DAILY
  5. ARAVA [Concomitant]
     Indication: RHEUMATOID ARTHRITIS
  6. BONIVA [Concomitant]
     Indication: OSTEOPOROSIS
  7. PARFON [Concomitant]
     Indication: RHEUMATOID ARTHRITIS
  8. CALCIUM [Concomitant]
     Indication: MINERAL SUPPLEMENTATION
     Dosage: DAILY

REACTIONS (4)
  - DEVICE MALFUNCTION [None]
  - WRONG TECHNIQUE IN DRUG USAGE PROCESS [None]
  - JOINT SWELLING [None]
  - RHEUMATOID ARTHRITIS [None]
